FAERS Safety Report 8497539-9 (Version None)
Quarter: 2012Q3

REPORT INFORMATION
  Report Type: 
  Country: None (occurrence: None)
  Receive Date: 20120709
  Receipt Date: 20120613
  Transmission Date: 20120928
  Serious: No
  Sender: FDA-Public Use
  Company Number: US-AMGEN-USASP2012036928

PATIENT
  Sex: Male

DRUGS (3)
  1. ENBREL [Suspect]
     Indication: RHEUMATOID ARTHRITIS
     Dosage: 50 MG, QWK
     Dates: start: 20080201
  2. VICODIN [Concomitant]
     Dosage: 5/500
  3. ENBREL [Suspect]
     Indication: SPONDYLOARTHROPATHY

REACTIONS (1)
  - INJECTION SITE PAIN [None]
